FAERS Safety Report 9724672 (Version 1)
Quarter: 2013Q4

REPORT INFORMATION
  Report Type: Spontaneous
  Country: JP (occurrence: JP)
  Receive Date: 20131202
  Receipt Date: 20131202
  Transmission Date: 20140711
  Serious: Yes (Other)
  Sender: FDA-Public Use
  Company Number: JP-SA-2013SA122711

PATIENT
  Age: 1 Day
  Sex: 0
  Weight: 1.42 kg

DRUGS (7)
  1. RENAGEL [Suspect]
     Indication: MATERNAL EXPOSURE DURING PREGNANCY
     Route: 064
  2. ALFAROL [Suspect]
     Indication: MATERNAL EXPOSURE DURING PREGNANCY
     Route: 064
  3. EPOETIN BETA [Suspect]
     Indication: MATERNAL EXPOSURE DURING PREGNANCY
     Route: 064
  4. OXAROL [Suspect]
     Indication: MATERNAL EXPOSURE DURING PREGNANCY
     Route: 064
  5. RITODRINE HYDROCHLORIDE [Concomitant]
     Route: 064
  6. ALL OTHER THERAPEUTIC PRODUCTS [Concomitant]
     Route: 064
  7. ALL OTHER THERAPEUTIC PRODUCTS [Concomitant]
     Route: 064

REACTIONS (2)
  - Low birth weight baby [Unknown]
  - Maternal exposure timing unspecified [Unknown]
